FAERS Safety Report 23764972 (Version 1)
Quarter: 2024Q2

REPORT INFORMATION
  Report Type: Spontaneous
  Country: US (occurrence: US)
  Receive Date: 20240420
  Receipt Date: 20240420
  Transmission Date: 20240716
  Serious: Yes (Disabling)
  Sender: FDA-Public Use
  Company Number: US-SANOFI-02013885

PATIENT
  Age: 89 Year
  Sex: Female

DRUGS (1)
  1. TOUJEO [Suspect]
     Active Substance: INSULIN GLARGINE
     Indication: Diabetes mellitus
     Dosage: 42 IU, BID; 2 TO 3 YEARS

REACTIONS (2)
  - Wheelchair user [Not Recovered/Not Resolved]
  - Off label use [Unknown]
